FAERS Safety Report 15709887 (Version 2)
Quarter: 2019Q2

REPORT INFORMATION
  Report Type: Spontaneous
  Country: US (occurrence: US)
  Receive Date: 20181211
  Receipt Date: 20190403
  Transmission Date: 20190711
  Serious: Yes (Hospitalization)
  Sender: FDA-Public Use
  Company Number: US-IMPAX LABORATORIES, LLC-2018-IPXL-03987

PATIENT
  Age: 53 Year
  Sex: Female

DRUGS (1)
  1. ADRENACLICK [Suspect]
     Active Substance: EPINEPHRINE
     Indication: HAEMOSTASIS
     Dosage: 1:1000 EPINEPHRINE
     Route: 061

REACTIONS (3)
  - Troponin increased [Unknown]
  - Electrocardiogram ST segment elevation [Unknown]
  - Coronary artery occlusion [Unknown]
